FAERS Safety Report 8938013 (Version 2)
Quarter: 2013Q1

REPORT INFORMATION
  Report Type: Report from Study
  Country: US (occurrence: US)
  Receive Date: 20121130
  Receipt Date: 20130222
  Transmission Date: 20140127
  Serious: Yes (Other)
  Sender: FDA-Public Use
  Company Number: US-ABBOTT-12P-163-1013529-00

PATIENT
  Age: 61 None
  Sex: Female
  Weight: 72.64 kg

DRUGS (7)
  1. HUMIRA [Suspect]
     Indication: RHEUMATOID ARTHRITIS
     Dosage: HUMIRA PFS
     Route: 058
     Dates: start: 200807, end: 201006
  2. HUMIRA [Suspect]
     Dosage: HUMIRA PENS
     Route: 058
     Dates: start: 201007, end: 201207
  3. HUMIRA [Suspect]
     Route: 058
     Dates: start: 201208, end: 20121023
  4. HUMIRA [Suspect]
     Dosage: HUMIRA PENS
     Route: 058
  5. METHOTREXATE [Concomitant]
     Indication: RHEUMATOID ARTHRITIS
     Dates: end: 201206
  6. METHOTREXATE [Concomitant]
     Dates: start: 20120802
  7. CRESTOR [Concomitant]
     Indication: BLOOD CHOLESTEROL INCREASED

REACTIONS (8)
  - Mobility decreased [Recovered/Resolved]
  - Arthralgia [Recovered/Resolved]
  - Osteoarthritis [Recovered/Resolved]
  - Haemarthrosis [Recovered/Resolved]
  - Rheumatoid arthritis [Recovered/Resolved]
  - Fall [Recovered/Resolved]
  - Rotator cuff syndrome [Recovered/Resolved]
  - Arthritis [Unknown]
